FAERS Safety Report 19211000 (Version 1)
Quarter: 2021Q2

REPORT INFORMATION
  Report Type: Other
  Country: US (occurrence: US)
  Receive Date: 20210501
  Receipt Date: 20210501
  Transmission Date: 20210717
  Serious: Yes (Other)
  Sender: FDA-Public Use
  Company Number: US-ROCHE-2820516

PATIENT
  Sex: Female

DRUGS (20)
  1. CRANBERRY FRUIT [Concomitant]
  2. PANTOPRAZOLE [Concomitant]
     Active Substance: PANTOPRAZOLE
  3. ESBRIET [Suspect]
     Active Substance: PIRFENIDONE
     Indication: IDIOPATHIC PULMONARY FIBROSIS
  4. CHOLECALCIFEROLUM [Concomitant]
     Active Substance: CHOLECALCIFEROL
  5. PREDNISOLONE. [Concomitant]
     Active Substance: PREDNISOLONE
  6. FUROSEMIDE. [Concomitant]
     Active Substance: FUROSEMIDE
  7. LEVOTHYROXINE. [Concomitant]
     Active Substance: LEVOTHYROXINE
  8. BIOTIN [Concomitant]
     Active Substance: BIOTIN
  9. GLUCOSAMINE [Concomitant]
     Active Substance: GLUCOSAMINE
  10. PROMETHAZINE [Concomitant]
     Active Substance: PROMETHAZINE HYDROCHLORIDE
  11. ESBRIET [Suspect]
     Active Substance: PIRFENIDONE
     Indication: PULMONARY FIBROSIS
     Route: 048
  12. FERROUS SULFATE. [Concomitant]
     Active Substance: FERROUS SULFATE
  13. METFORMIN [Concomitant]
     Active Substance: METFORMIN HYDROCHLORIDE
  14. OMEGA 3 [Concomitant]
     Active Substance: OMEGA-3 FATTY ACIDS
  15. POTASSIUM CHLORIDE. [Concomitant]
     Active Substance: POTASSIUM CHLORIDE
  16. AMLODIPINE [Concomitant]
     Active Substance: AMLODIPINE BESYLATE
  17. ATORVASTATIN [Concomitant]
     Active Substance: ATORVASTATIN
  18. ALENDRONATE SODIUM. [Concomitant]
     Active Substance: ALENDRONATE SODIUM
  19. KETOROLAC [Concomitant]
     Active Substance: KETOROLAC TROMETHAMINE
  20. BUSPIRONE [Concomitant]
     Active Substance: BUSPIRONE HYDROCHLORIDE

REACTIONS (1)
  - Foot deformity [Unknown]
